FAERS Safety Report 13458298 (Version 1)
Quarter: 2017Q2

REPORT INFORMATION
  Report Type: Spontaneous
  Country: GB (occurrence: GB)
  Receive Date: 20170419
  Receipt Date: 20170419
  Transmission Date: 20170830
  Serious: Yes (Hospitalization, Other)
  Sender: FDA-Public Use
  Company Number: GB-SUN PHARMACEUTICAL INDUSTRIES LTD-2017RR-138095

PATIENT
  Age: 75 Year
  Sex: Male
  Weight: 100.6 kg

DRUGS (13)
  1. CALCICHEW [Concomitant]
     Active Substance: CALCIUM CARBONATE
     Indication: OSTEOPOROSIS PROPHYLAXIS
     Dosage: 2000 MG, BID
     Route: 065
     Dates: start: 20170110
  2. COCODAMOL [Concomitant]
     Active Substance: ACETAMINOPHEN\CODEINE PHOSPHATE
     Indication: PRODUCT USED FOR UNKNOWN INDICATION
     Dosage: 1 OR 2  WHEN REQUIRED
     Route: 065
     Dates: start: 20170110
  3. ATORVASTATIN [Suspect]
     Active Substance: ATORVASTATIN
     Indication: CARDIOVASCULAR DISORDER
     Dosage: 10 MG, AT NIGHT
     Route: 048
     Dates: start: 20170210, end: 20170308
  4. BECLOMETASONE [Concomitant]
     Active Substance: BECLOMETHASONE DIPROPIONATE
     Indication: PRODUCT USED FOR UNKNOWN INDICATION
     Dosage: IN EACH NOSTRIL
     Route: 045
     Dates: start: 20160718
  5. LISINOPRIL. [Concomitant]
     Active Substance: LISINOPRIL
     Indication: HYPERTENSION
     Dosage: MORNING
     Route: 065
     Dates: start: 20170110
  6. LEVOTHYROXINE SODIUM. [Concomitant]
     Active Substance: LEVOTHYROXINE SODIUM
     Indication: PRODUCT USED FOR UNKNOWN INDICATION
     Dosage: 175 ?G, DAILY
     Route: 065
     Dates: start: 20170110
  7. OMEPRAZOLE. [Concomitant]
     Active Substance: OMEPRAZOLE
     Indication: PROPHYLAXIS AGAINST GASTROINTESTINAL ULCER
     Dosage: 20 MG, DAILY
     Route: 065
     Dates: start: 20170110
  8. FOLIC ACID. [Concomitant]
     Active Substance: FOLIC ACID
     Indication: PRODUCT USED FOR UNKNOWN INDICATION
     Dosage: 48 HOURS AFTER METHOTREXATE
     Route: 065
     Dates: start: 20170208
  9. METHOTREXATE. [Suspect]
     Active Substance: METHOTREXATE
     Indication: RHEUMATOID ARTHRITIS
     Dosage: 15 MG, 1/WEEK
     Route: 065
     Dates: start: 20140415, end: 20170308
  10. FINASTERIDE. [Concomitant]
     Active Substance: FINASTERIDE
     Indication: BENIGN PROSTATIC HYPERPLASIA
     Dosage: 5 MG, BID
     Route: 065
     Dates: start: 20170110
  11. PARACETAMOL [Concomitant]
     Active Substance: ACETAMINOPHEN
     Indication: PRODUCT USED FOR UNKNOWN INDICATION
     Dosage: ONE OR TWO TO BE TAKEN EVERY 4 TO 6 HOURS. NOT MORE THAN EIGHT TABLETS  IN 24 HOURS
     Route: 065
     Dates: start: 20160405
  12. AMLODIPINE [Concomitant]
     Active Substance: AMLODIPINE BESYLATE
     Indication: HYPERTENSION
     Dosage: DOSE REDUCED TO 5MG.
     Route: 065
     Dates: start: 20170110, end: 20170320
  13. IBUPROFEN. [Concomitant]
     Active Substance: IBUPROFEN
     Indication: PAIN
     Dosage: WITH FOOD
     Route: 065
     Dates: start: 20170308

REACTIONS (3)
  - Malaise [Unknown]
  - Mucosal ulceration [Unknown]
  - Pancytopenia [Recovering/Resolving]

NARRATIVE: CASE EVENT DATE: 201703
